FAERS Safety Report 5456648-9 (Version None)
Quarter: 2007Q3

REPORT INFORMATION
  Report Type: 
  Country: None (occurrence: None)
  Receive Date: 20070918
  Receipt Date: 20070905
  Transmission Date: 20080115
  Serious: No
  Sender: FDA-Public Use
  Company Number: US-ELI_LILLY_AND_COMPANY-US200709001070

PATIENT
  Age: 65 Year
  Sex: Male

DRUGS (3)
  1. CYMBALTA [Suspect]
     Dosage: 60 MG, UNK
     Dates: start: 20060101, end: 20070801
  2. CYMBALTA [Suspect]
     Dosage: UNK, UNK
     Dates: start: 20070101
  3. CRESTOR [Concomitant]
     Dates: end: 20070801

REACTIONS (1)
  - ALANINE AMINOTRANSFERASE INCREASED [None]
